FAERS Safety Report 4947460-5 (Version None)
Quarter: 2006Q1

REPORT INFORMATION
  Report Type: 
  Country: None (occurrence: None)
  Receive Date: 20060314
  Receipt Date: 20060302
  Transmission Date: 20060701
  Serious: Yes (Life-Threatening)
  Sender: FDA-Public Use
  Company Number: 2005171128

PATIENT
  Age: 7 Year
  Sex: Male
  Weight: 24 kg

DRUGS (4)
  1. CLINDAMYCIN PHOSPHATE [Suspect]
     Indication: INFECTION
     Dosage: 480 MG (160 MG, 3 IN 1 D), INTRAVENOUS
     Route: 042
     Dates: start: 20051126, end: 20051130
  2. ANHIBA (ACETAMINOPHEN) (PARACETAMOL) [Suspect]
     Indication: PYREXIA
     Dosage: 600 MG, (200 MG, 3 IN 1 D), RECTAL
     Route: 054
     Dates: start: 20051121, end: 20051130
  3. CEFOTAX (CEFOTAXIME SODIUM) (CEFOTAXIME SODIUM) [Suspect]
     Indication: INFECTION
     Dosage: 1200 MG (400 MG, 3 IN 1 D), INTRAVENOUS
     Route: 042
     Dates: start: 20051126, end: 20051130
  4. EPOCELIN (CEFTIZOXIME SODIUM) (CEFTIZOXIME SODIUM) [Concomitant]
     Indication: ILL-DEFINED DISORDER
     Dosage: 750 MG (250 MG, 3 IN 1 D), RECTAL
     Route: 054
     Dates: start: 20051124, end: 20051126

REACTIONS (3)
  - HAEMODIALYSIS [None]
  - RENAL IMPAIRMENT [None]
  - TUBULOINTERSTITIAL NEPHRITIS [None]
